FAERS Safety Report 19576089 (Version 1)
Quarter: 2021Q3

REPORT INFORMATION
  Report Type: Spontaneous
  Country: US (occurrence: US)
  Receive Date: 20210718
  Receipt Date: 20210718
  Transmission Date: 20211014
  Serious: No
  Sender: FDA-Public Use
  Company Number: None

PATIENT
  Age: 64 Year
  Sex: Female
  Weight: 69.75 kg

DRUGS (9)
  1. ULTRAM [Concomitant]
     Active Substance: TRAMADOL HYDROCHLORIDE
  2. BENDRYL [Concomitant]
  3. FIORICET [Concomitant]
     Active Substance: ACETAMINOPHEN\BUTALBITAL\CAFFEINE
  4. SEROQUEL [Concomitant]
     Active Substance: QUETIAPINE FUMARATE
  5. PSEUDOFED 12 HR [Concomitant]
  6. ACTAVIS LIDOCAINE 5% PATCH [Suspect]
     Active Substance: LIDOCAINE
     Indication: PAIN
     Dosage: ?          OTHER STRENGTH:EACH UNIT;QUANTITY:1 PATCH(ES);?
     Route: 062
     Dates: start: 20210708, end: 20210718
  7. ROBAXIN [Concomitant]
     Active Substance: METHOCARBAMOL
  8. LYRICA [Concomitant]
     Active Substance: PREGABALIN
  9. STANDARD MULTIVITAMINS [Concomitant]

REACTIONS (4)
  - Muscle spasms [None]
  - Product design issue [None]
  - Product formulation issue [None]
  - Diarrhoea [None]

NARRATIVE: CASE EVENT DATE: 20210714
